FAERS Safety Report 5210698-6 (Version None)
Quarter: 2007Q1

REPORT INFORMATION
  Report Type: 
  Country: None (occurrence: None)
  Receive Date: 20070117
  Receipt Date: 20070111
  Transmission Date: 20070707
  Serious: Yes (Other)
  Sender: FDA-Public Use
  Company Number: GB-GLAXOSMITHKLINE-B0454325A

PATIENT
  Age: 37 Year
  Sex: Female

DRUGS (3)
  1. PAROXETINE HCL [Suspect]
     Dates: start: 19960101, end: 20050701
  2. ST JOHNS WORT [Concomitant]
  3. TEMAZEPAM [Concomitant]

REACTIONS (22)
  - ABDOMINAL DISCOMFORT [None]
  - AGITATION [None]
  - AMNESIA [None]
  - BALANCE DISORDER [None]
  - DISORIENTATION [None]
  - DRUG WITHDRAWAL SYNDROME [None]
  - DYSARTHRIA [None]
  - DYSPEPSIA [None]
  - DYSPNOEA [None]
  - FEELING COLD [None]
  - FEELING DRUNK [None]
  - GAIT DISTURBANCE [None]
  - HALLUCINATION [None]
  - HYPERHIDROSIS [None]
  - INSOMNIA [None]
  - NIGHTMARE [None]
  - PALPITATIONS [None]
  - PARAESTHESIA [None]
  - POLLAKIURIA [None]
  - SPEECH DISORDER [None]
  - TREMOR [None]
  - VISION BLURRED [None]
